FAERS Safety Report 4657705-7 (Version None)
Quarter: 2005Q2

REPORT INFORMATION
  Report Type: 
  Country: None (occurrence: None)
  Receive Date: 20050510
  Receipt Date: 20050308
  Transmission Date: 20051028
  Serious: Yes (Hospitalization, Other)
  Sender: FDA-Public Use
  Company Number: US-BRISTOL-MYERS SQUIBB COMPANY-12890778

PATIENT
  Age: 72 Year
  Sex: Female

DRUGS (2)
  1. CETUXIMAB [Suspect]
     Indication: COLORECTAL CANCER METASTATIC
     Dosage: FIRST AND MOST RECENT CETUXIMAB INFUSION ADMINISTERED ON 17-FEB-2005. DOSE REDUCED AND INTERRUPTED.
     Route: 042
     Dates: start: 20050217, end: 20050217
  2. IRINOTECAN HCL [Suspect]
     Indication: COLORECTAL CANCER METASTATIC
     Dosage: FIRST AND MOST RECENT IRINOTECAN INFUSION ADMINISTERED ON 17-FEB-2005. DOSE REDUCED.
     Route: 042
     Dates: start: 20050217, end: 20050217

REACTIONS (9)
  - ABDOMINAL PAIN [None]
  - ANAEMIA [None]
  - CLOSTRIDIUM COLITIS [None]
  - DEHYDRATION [None]
  - DIARRHOEA [None]
  - HYPOTENSION [None]
  - NAUSEA [None]
  - NEUTROPENIA [None]
  - VOMITING [None]
